FAERS Safety Report 4807574-7 (Version None)
Quarter: 2005Q4

REPORT INFORMATION
  Report Type: 
  Country: None (occurrence: None)
  Receive Date: 20051024
  Receipt Date: 20051007
  Transmission Date: 20060501
  Serious: Yes (Hospitalization)
  Sender: FDA-Public Use
  Company Number: GR-SANOFI-SYNTHELABO-F01200502080

PATIENT
  Sex: Female

DRUGS (4)
  1. OXALIPLATIN [Suspect]
     Indication: COLON CANCER
     Route: 042
     Dates: start: 20050913, end: 20050913
  2. FLUOROURACIL [Suspect]
     Dosage: 688 MG IV BOLUS AND 1032 MG CONTINUOUS INFUSION Q2W
     Route: 042
     Dates: start: 20050914, end: 20050915
  3. LEUCOVORIN [Suspect]
     Route: 042
     Dates: start: 20050913, end: 20050914
  4. BEVACIZUMAB [Suspect]
     Route: 042
     Dates: start: 20050913, end: 20050913

REACTIONS (2)
  - ABDOMINAL ABSCESS [None]
  - INTESTINAL PERFORATION [None]
